FAERS Safety Report 5143366-X (Version None)
Quarter: 2006Q4

REPORT INFORMATION
  Report Type: 
  Country: None (occurrence: None)
  Receive Date: 20061103
  Receipt Date: 20061023
  Transmission Date: 20070319
  Serious: Yes (Hospitalization)
  Sender: FDA-Public Use
  Company Number: AU-JNJFOC-20061100343

PATIENT
  Sex: Female

DRUGS (6)
  1. TRAMADOL HCL [Suspect]
     Indication: DRUG USE FOR UNKNOWN INDICATION
     Route: 048
  2. MERUVAX II [Concomitant]
     Route: 065
  3. ACETAMINOPHEN W/ CODEINE [Concomitant]
     Route: 065
  4. MARCAINE [Concomitant]
     Route: 065
  5. PANADOL [Concomitant]
     Route: 065
  6. FENAC [Concomitant]
     Route: 065

REACTIONS (1)
  - HYPERACUSIS [None]
